FAERS Safety Report 9165783 (Version 1)
Quarter: 2013Q1

REPORT INFORMATION
  Report Type: Spontaneous
  Country: DK (occurrence: None)
  Receive Date: 20130228
  Receipt Date: 20130228
  Transmission Date: 20140127
  Serious: Yes (Other)
  Sender: FDA-Public Use
  Company Number: 2013MA001327

PATIENT
  Age: 44 Year
  Sex: Female

DRUGS (8)
  1. VINORELBINE INJECTION USP, 10MG/ML PACKAGED IN 10MG/ML (ATLLC) (VINORELBINE) [Suspect]
     Dates: end: 201002
  2. PACLITAXEL [Suspect]
     Dates: start: 201206
  3. GEMCITABINE HYDROCHLORIDE [Suspect]
     Dates: start: 201201
  4. TAXOTERE (DOCETAXEL) [Suspect]
     Dates: start: 201206
  5. ERIBULIN (NO PREF. NAME) [Suspect]
     Dates: start: 2006
  6. HERCEPTIN (NO PREF. NAME) [Suspect]
     Dates: start: 201201
  7. LAPATINIB [Suspect]
     Dates: start: 201105, end: 201201
  8. XELODA (CAPECITABINE) [Suspect]
     Route: 048
     Dates: start: 201105, end: 201201

REACTIONS (5)
  - Breast cancer [None]
  - Malignant neoplasm progression [None]
  - Metastases to lung [None]
  - Haematotoxicity [None]
  - Ejection fraction abnormal [None]
